FAERS Safety Report 4869541-7 (Version None)
Quarter: 2005Q4

REPORT INFORMATION
  Report Type: 
  Country: None (occurrence: None)
  Receive Date: 20051227
  Receipt Date: 20051209
  Transmission Date: 20060501
  Serious: Yes (Life-Threatening, Hospitalization)
  Sender: FDA-Public Use
  Company Number: FR-JNJFOC-20051202603

PATIENT
  Age: 90 Year
  Sex: Male

DRUGS (5)
  1. REMINYL (GALANTAMINE HBR) TABLETS [Suspect]
     Indication: DEMENTIA ALZHEIMER'S TYPE
     Dosage: 8 MG, IN 1 DAY, ORAL
     Route: 048
     Dates: end: 20040514
  2. ARICEPT [Suspect]
     Indication: DEMENTIA ALZHEIMER'S TYPE
     Dosage: 5 MG, IN 1 DAY, ORAL
     Route: 048
     Dates: end: 20040514
  3. TIAPRIDAL (TIAPRIDE) [Suspect]
     Dosage: 200 MG,  IN 1 DAY, ORAL
     Route: 048
     Dates: end: 20040514
  4. LEXOMIL (BROMAZEPAM) [Concomitant]
  5. ZOPICLONE (ZOPICLONE) [Concomitant]

REACTIONS (7)
  - BLOOD PRESSURE IMMEASURABLE [None]
  - HEART RATE DECREASED [None]
  - HYPONATRAEMIA [None]
  - LOSS OF CONSCIOUSNESS [None]
  - MALAISE [None]
  - MIOSIS [None]
  - PALLOR [None]
